FAERS Safety Report 13619711 (Version 2)
Quarter: 2017Q2

REPORT INFORMATION
  Report Type: Report from Study
  Country: US (occurrence: US)
  Receive Date: 20170606
  Receipt Date: 20170614
  Transmission Date: 20170830
  Serious: Yes (Hospitalization)
  Sender: FDA-Public Use
  Company Number: US-VIFOR (INTERNATIONAL) INC.-VIT-2017-06310

PATIENT
  Age: 38 Year
  Sex: Female

DRUGS (10)
  1. CIPROFLOXACIN. [Concomitant]
     Active Substance: CIPROFLOXACIN
  2. LANTUS [Concomitant]
     Active Substance: INSULIN GLARGINE
  3. LISINOPRIL. [Concomitant]
     Active Substance: LISINOPRIL
  4. ONDANSETRON [Concomitant]
     Active Substance: ONDANSETRON
  5. SIMVASTATIN. [Concomitant]
     Active Substance: SIMVASTATIN
  6. TOUJEO SOLO [Concomitant]
  7. ISOSORBIDE MONONITRATE. [Concomitant]
     Active Substance: ISOSORBIDE MONONITRATE
  8. VELTASSA [Suspect]
     Active Substance: PATIROMER
     Indication: HYPERKALAEMIA
     Route: 048
     Dates: start: 20170512
  9. CETRIZINE [Concomitant]
     Active Substance: CETIRIZINE HYDROCHLORIDE
  10. FLUTICASONE. [Concomitant]
     Active Substance: FLUTICASONE

REACTIONS (4)
  - Blood pressure increased [Not Recovered/Not Resolved]
  - Malaise [Not Recovered/Not Resolved]
  - Blood glucose increased [Not Recovered/Not Resolved]
  - Nephrolithiasis [Not Recovered/Not Resolved]

NARRATIVE: CASE EVENT DATE: 20170529
